FAERS Safety Report 5735237-2 (Version None)
Quarter: 2008Q2

REPORT INFORMATION
  Report Type: 
  Country: None (occurrence: None)
  Receive Date: 20080512
  Receipt Date: 20080502
  Transmission Date: 20081010
  Serious: Yes (Other)
  Sender: FDA-Public Use
  Company Number: AU-ASTRAZENECA-2008AP03469

PATIENT
  Age: 14295 Day
  Sex: Female
  Weight: 58 kg

DRUGS (9)
  1. FENTANYL [Suspect]
     Route: 065
     Dates: start: 20071008, end: 20071008
  2. PROPOFOL [Suspect]
     Route: 042
     Dates: start: 20071008, end: 20071008
  3. DEXAMETHASONE [Suspect]
     Indication: NAUSEA
     Dates: start: 20071008, end: 20071008
  4. DEXAMETHASONE [Suspect]
     Indication: VOMITING
     Dates: start: 20071008, end: 20071008
  5. CEPHALOTHIN SODIUM [Suspect]
     Route: 042
     Dates: start: 20071008, end: 20071008
  6. KEFLEX [Suspect]
     Route: 048
  7. ONDANSETRON HCL [Suspect]
     Indication: NAUSEA
     Dates: start: 20071008, end: 20071008
  8. ONDANSETRON HCL [Suspect]
     Indication: VOMITING
     Dates: start: 20071008, end: 20071008
  9. PARECOXIB SODIUM [Suspect]
     Dates: start: 20071008, end: 20071008

REACTIONS (1)
  - DERMATITIS EXFOLIATIVE [None]
